FAERS Safety Report 9820950 (Version 2)
Quarter: 2014Q2

REPORT INFORMATION
  Report Type: Spontaneous
  Country: US (occurrence: US)
  Receive Date: 20140116
  Receipt Date: 20140409
  Transmission Date: 20141212
  Serious: No
  Sender: FDA-Public Use
  Company Number: US-MYLANLABS-2013S1028279

PATIENT
  Age: 59 Year
  Sex: Female

DRUGS (4)
  1. VALSARTAN/HYDROCHLOORTHIAZIDE [Suspect]
     Indication: BLOOD PRESSURE INCREASED
     Dates: start: 20130511
  2. ALLERGY SHOTS [Concomitant]
  3. ATENOLOL [Concomitant]
  4. BUPROPION [Concomitant]
     Dosage: XL

REACTIONS (5)
  - Mood altered [Not Recovered/Not Resolved]
  - Anxiety [Recovered/Resolved]
  - Psoriasis [Not Recovered/Not Resolved]
  - Vitamin D decreased [Not Recovered/Not Resolved]
  - Unevaluable event [Not Recovered/Not Resolved]
